FAERS Safety Report 11254251 (Version 6)
Quarter: 2016Q3

REPORT INFORMATION
  Report Type: Spontaneous
  Country: US (occurrence: US)
  Receive Date: 20150709
  Receipt Date: 20160711
  Transmission Date: 20161109
  Serious: Yes (Hospitalization, Other)
  Sender: FDA-Public Use
  Company Number: US-PFIZER INC-2015223613

PATIENT
  Age: 79 Year
  Sex: Female
  Weight: 67 kg

DRUGS (1)
  1. XALATAN [Suspect]
     Active Substance: LATANOPROST
     Indication: GLAUCOMA
     Dosage: ONE DROP EACH EYE 1X/DAY AT  BEDTIME (HS)
     Route: 047
     Dates: start: 1994

REACTIONS (4)
  - Cerebrovascular accident [Unknown]
  - Retinal vein occlusion [Not Recovered/Not Resolved]
  - Ocular vascular disorder [Unknown]
  - Arthropathy [Recovered/Resolved]

NARRATIVE: CASE EVENT DATE: 201411
